FAERS Safety Report 19907713 (Version 1)
Quarter: 2021Q3

REPORT INFORMATION
  Report Type: Report from Study
  Country: US (occurrence: US)
  Receive Date: 20210930
  Receipt Date: 20210930
  Transmission Date: 20211014
  Serious: No
  Sender: FDA-Public Use
  Company Number: NVSC2021US222469

PATIENT
  Sex: Female

DRUGS (1)
  1. COSENTYX [Suspect]
     Active Substance: SECUKINUMAB
     Indication: PSORIASIS
     Dosage: 300 MG, QW, ON THE SKIN
     Route: 003

REACTIONS (4)
  - Pruritus [Recovering/Resolving]
  - Abdominal discomfort [Recovering/Resolving]
  - Injection site reaction [Recovering/Resolving]
  - Pain [Recovering/Resolving]
